FAERS Safety Report 9490919 (Version 1)
Quarter: 2013Q3

REPORT INFORMATION
  Report Type: Spontaneous
  Country: CN (occurrence: CN)
  Receive Date: 20130830
  Receipt Date: 20130830
  Transmission Date: 20140515
  Serious: Yes (Other)
  Sender: FDA-Public Use
  Company Number: CN-JNJFOC-20130813051

PATIENT
  Age: 7 Year
  Sex: Female

DRUGS (4)
  1. TOPAMAX [Suspect]
     Indication: EPILEPSY
     Route: 048
     Dates: start: 201302
  2. TOPAMAX [Suspect]
     Indication: EPILEPSY
     Route: 048
  3. TOPAMAX [Suspect]
     Indication: EPILEPSY
     Dosage: IN APR-2013 OR MAY-2013
     Route: 048
     Dates: start: 2013
  4. KEPPRA [Suspect]
     Indication: EPILEPSY
     Route: 065
     Dates: start: 2013

REACTIONS (2)
  - Precocious puberty [Unknown]
  - Anhidrosis [Unknown]
